FAERS Safety Report 13250344 (Version 2)
Quarter: 2017Q1

REPORT INFORMATION
  Report Type: Report from Study
  Country: US (occurrence: US)
  Receive Date: 20170218
  Receipt Date: 20170223
  Transmission Date: 20170428
  Serious: Yes (Other)
  Sender: FDA-Public Use
  Company Number: US-GILEAD-2017-0256156

PATIENT
  Age: 71 Year
  Sex: Female

DRUGS (5)
  1. ORENITRAM [Suspect]
     Active Substance: TREPROSTINIL
     Indication: PRODUCT USED FOR UNKNOWN INDICATION
     Dosage: 1 MG, TID
     Route: 065
  2. ORENITRAM [Suspect]
     Active Substance: TREPROSTINIL
     Dosage: 0.75 MG, QD AM
     Route: 065
  3. ORENITRAM [Suspect]
     Active Substance: TREPROSTINIL
     Dosage: 0.625 MG, QD PM
     Route: 065
  4. XARELTO [Concomitant]
     Active Substance: RIVAROXABAN
  5. AMBRISENTAN [Suspect]
     Active Substance: AMBRISENTAN
     Indication: PRODUCT USED FOR UNKNOWN INDICATION
     Dosage: 5 MG, QD
     Route: 065

REACTIONS (18)
  - Dyspepsia [Not Recovered/Not Resolved]
  - Back pain [Unknown]
  - Feeding disorder [Unknown]
  - Hernia [Unknown]
  - Pain [Unknown]
  - Dyspepsia [Unknown]
  - Nephrolithiasis [Recovered/Resolved]
  - Lymphoedema [Unknown]
  - Abdominal discomfort [Unknown]
  - Scleroderma [Unknown]
  - Eating disorder [Unknown]
  - Nerve compression [Unknown]
  - Gastrooesophageal reflux disease [Unknown]
  - Gait disturbance [Unknown]
  - Gastrointestinal disorder [Unknown]
  - Neck pain [Unknown]
  - Balance disorder [Unknown]
  - Gout [Unknown]

NARRATIVE: CASE EVENT DATE: 20170131
